FAERS Safety Report 21342160 (Version 1)
Quarter: 2022Q3

REPORT INFORMATION
  Report Type: Spontaneous
  Country: US (occurrence: US)
  Receive Date: 20220916
  Receipt Date: 20220916
  Transmission Date: 20221026
  Serious: No
  Sender: FDA-Public Use
  Company Number: US-GLAXOSMITHKLINE-US2022131316

PATIENT
  Sex: Female

DRUGS (1)
  1. ZEJULA [Suspect]
     Active Substance: NIRAPARIB
     Indication: Fallopian tube cancer
     Dosage: 100 MG, QD
     Route: 048
     Dates: start: 20211208

REACTIONS (5)
  - Hypertension [Unknown]
  - Blood potassium increased [Unknown]
  - Asthma [Unknown]
  - Dyspnoea [Unknown]
  - Ill-defined disorder [Unknown]
